FAERS Safety Report 5526162-0 (Version None)
Quarter: 2007Q4

REPORT INFORMATION
  Report Type: 
  Country: None (occurrence: None)
  Receive Date: 20071120
  Receipt Date: 20071108
  Transmission Date: 20080405
  Serious: Yes (Hospitalization)
  Sender: FDA-Public Use
  Company Number: 230054M07FRA

PATIENT
  Age: 33 Year
  Sex: Male
  Weight: 85 kg

DRUGS (4)
  1. REBIF [Suspect]
     Dosage: 44 MCG, 3 IN 1 WEEKS
  2. ALFUZOSIN HCL [Concomitant]
  3. TROSPIUM CHLORIDE [Concomitant]
  4. ACETAMINOPHEN [Concomitant]

REACTIONS (6)
  - GAIT DISTURBANCE [None]
  - INJECTION SITE ERYTHEMA [None]
  - INJECTION SITE INDURATION [None]
  - INJECTION SITE PAIN [None]
  - INJECTION SITE WARMTH [None]
  - URINARY RETENTION [None]
